FAERS Safety Report 7750308-7 (Version None)
Quarter: 2011Q3

REPORT INFORMATION
  Report Type: 
  Country: None (occurrence: None)
  Receive Date: 20110912
  Receipt Date: 20110830
  Transmission Date: 20111222
  Serious: Yes (Other)
  Sender: FDA-Public Use
  Company Number: GER/GER/11/0019115

PATIENT
  Age: 4 Year
  Sex: Male
  Weight: 15 kg

DRUGS (7)
  1. IBUPROFEN [Suspect]
     Indication: PRODUCT USED FOR UNKNOWN INDICATION
     Dosage: 150 MG, ORAL
     Route: 048
     Dates: start: 20110716
  2. BUSCOPAN PLUS (BUSCOPAN PLUS) [Suspect]
     Indication: PRODUCT USED FOR UNKNOWN INDICATION
     Dosage: ORAL
     Route: 048
     Dates: start: 20110716
  3. XYLOMETAZOLINE (XYLOMETAZOLINE) [Suspect]
     Indication: PRODUCT USED FOR UNKNOWN INDICATION
     Dosage: ORAL
     Route: 048
     Dates: start: 20110716
  4. KALIUMPERMANGANAT (POTASSIUM PERMANGANATE) [Suspect]
     Indication: PRODUCT USED FOR UNKNOWN INDICATION
     Dosage: SKIN/ORAL
     Route: 048
     Dates: start: 20110715
  5. DICLOFENAC SODIUM [Suspect]
     Indication: PRODUCT USED FOR UNKNOWN INDICATION
     Dosage: ORAL
     Route: 048
     Dates: start: 20110716
  6. OMEPRAZOLE [Suspect]
     Indication: PRODUCT USED FOR UNKNOWN INDICATION
     Dosage: ORAL
     Route: 048
     Dates: start: 20110716
  7. METOCLOPRAMIDE [Suspect]
     Indication: PRODUCT USED FOR UNKNOWN INDICATION
     Dosage: ORAL
     Route: 048
     Dates: start: 20110716

REACTIONS (3)
  - SKIN DISCOLOURATION [None]
  - DIARRHOEA [None]
  - ACCIDENTAL DRUG INTAKE BY CHILD [None]
